FAERS Safety Report 18795955 (Version 2)
Quarter: 2021Q1

REPORT INFORMATION
  Report Type: Spontaneous
  Country: US (occurrence: US)
  Receive Date: 20210127
  Receipt Date: 20210331
  Transmission Date: 20210419
  Serious: Yes (Other)
  Sender: FDA-Public Use
  Company Number: US-GLAXOSMITHKLINE-US2021GSK019330

PATIENT
  Sex: Female

DRUGS (4)
  1. RANITIDINE. [Suspect]
     Active Substance: RANITIDINE
     Indication: PREGNANCY
     Dosage: 150 MG, QD
     Route: 065
     Dates: start: 200001, end: 202008
  2. ZANTAC [Suspect]
     Active Substance: RANITIDINE HYDROCHLORIDE
     Indication: PREGNANCY
     Dosage: 150 MG, QD
     Route: 065
     Dates: start: 200001, end: 202008
  3. RANITIDINE. [Suspect]
     Active Substance: RANITIDINE
     Indication: PREGNANCY
     Dosage: 150 MG, QD
     Route: 065
     Dates: start: 200001, end: 202008
  4. ZANTAC [Suspect]
     Active Substance: RANITIDINE HYDROCHLORIDE
     Indication: PREGNANCY
     Dosage: 150 MG, QD
     Route: 065
     Dates: start: 200001, end: 202008

REACTIONS (1)
  - Breast cancer [Unknown]
